FAERS Safety Report 7240085-0 (Version None)
Quarter: 2011Q1

REPORT INFORMATION
  Report Type: 
  Country: None (occurrence: None)
  Receive Date: 20110119
  Receipt Date: 20110119
  Transmission Date: 20110831
  Serious: Yes (Other)
  Sender: FDA-Public Use
  Company Number: None

PATIENT
  Age: 49 Year
  Sex: Male
  Weight: 79.4 kg

DRUGS (1)
  1. ENOXAPARIN [Suspect]
     Dosage: 30 MG EVERY 12 HOURS SQ
     Dates: start: 20110102, end: 20110103

REACTIONS (6)
  - INJECTION SITE OEDEMA [None]
  - SKIN WARM [None]
  - TENDERNESS [None]
  - NECROSIS [None]
  - PRODUCT CONTAMINATION [None]
  - INJECTION SITE ERYTHEMA [None]
